FAERS Safety Report 21793351 (Version 1)
Quarter: 2022Q4

REPORT INFORMATION
  Report Type: Report from Study
  Country: CR (occurrence: CR)
  Receive Date: 20221229
  Receipt Date: 20221229
  Transmission Date: 20230112
  Serious: Yes (Other)
  Sender: FDA-Public Use
  Company Number: CR-002147023-NVSC2022CR281353

PATIENT
  Age: 71 Year
  Sex: Male
  Weight: 65.76 kg

DRUGS (7)
  1. HYDROCHLOROTHIAZIDE\VALSARTAN [Suspect]
     Active Substance: HYDROCHLOROTHIAZIDE\VALSARTAN
     Indication: Hypertension
     Dosage: UNK UNK, QD(320/12.5MG)
     Route: 048
     Dates: start: 2014, end: 202103
  2. HYDROCHLOROTHIAZIDE\VALSARTAN [Suspect]
     Active Substance: HYDROCHLOROTHIAZIDE\VALSARTAN
     Dosage: UNK (320/12.5 MG)
     Route: 065
  3. EXFORGE [Suspect]
     Active Substance: AMLODIPINE BESYLATE\VALSARTAN
     Indication: Hypertension
     Dosage: UNK UNK, QD (10/320MG), STOPPED ON 23 NOV
     Route: 048
     Dates: start: 202103
  4. EXFORGE [Suspect]
     Active Substance: AMLODIPINE BESYLATE\VALSARTAN
     Dosage: UNK, QD(5/320MG)
     Route: 048
     Dates: start: 20221121
  5. EXFORGE [Suspect]
     Active Substance: AMLODIPINE BESYLATE\VALSARTAN
     Dosage: UNK, QD(5/320MG)
     Route: 048
     Dates: start: 20221123
  6. EXFORGE [Suspect]
     Active Substance: AMLODIPINE BESYLATE\VALSARTAN
     Dosage: UNK (5/320MG)
     Route: 048
     Dates: start: 20221127
  7. ALFUZOSIN [Concomitant]
     Active Substance: ALFUZOSIN
     Indication: Prostatic disorder
     Dosage: 10 MG
     Route: 065
     Dates: start: 20210921

REACTIONS (6)
  - Bradycardia [Unknown]
  - Arrhythmia [Recovering/Resolving]
  - Blood pressure systolic increased [Unknown]
  - Blood pressure increased [Recovering/Resolving]
  - Blood pressure decreased [Not Recovered/Not Resolved]
  - Tachycardia [Recovering/Resolving]

NARRATIVE: CASE EVENT DATE: 20210801
